FAERS Safety Report 6666184-X (Version None)
Quarter: 2010Q2

REPORT INFORMATION
  Report Type: 
  Country: None (occurrence: None)
  Receive Date: 20100402
  Receipt Date: 20100323
  Transmission Date: 20101027
  Serious: Yes (Hospitalization)
  Sender: FDA-Public Use
  Company Number: US-JNJFOC-20100112099

PATIENT
  Age: 27 Year
  Sex: Female
  Weight: 107.96 kg

DRUGS (8)
  1. MOTRIN IB [Suspect]
     Indication: ARTHRALGIA
  2. MOTRIN IB [Suspect]
     Indication: PAIN
  3. TYLENOL (CAPLET) [Suspect]
     Indication: PAIN
  4. TYLENOL (CAPLET) [Suspect]
     Indication: ARTHRALGIA
  5. TYLENOL [Suspect]
     Indication: ARTHRALGIA
  6. TYLENOL [Suspect]
     Indication: PAIN
  7. ROLAIDS [Suspect]
     Indication: DRUG USE FOR UNKNOWN INDICATION
  8. ZOLOFT [Concomitant]
     Indication: DEPRESSION

REACTIONS (7)
  - ABDOMINAL DISCOMFORT [None]
  - ABDOMINAL PAIN UPPER [None]
  - DIARRHOEA [None]
  - GALLBLADDER DISORDER [None]
  - INFLUENZA LIKE ILLNESS [None]
  - PRODUCT QUALITY ISSUE [None]
  - VOMITING [None]
